FAERS Safety Report 18526735 (Version 2)
Quarter: 2021Q2

REPORT INFORMATION
  Report Type: Spontaneous
  Country: US (occurrence: US)
  Receive Date: 20201120
  Receipt Date: 20210611
  Transmission Date: 20210717
  Serious: Yes (Hospitalization)
  Sender: FDA-Public Use
  Company Number: US-B.I. PHARMACEUTICALS,INC./RIDGEFIELD-2020-BI-061827

PATIENT
  Age: 66 Year
  Sex: Male

DRUGS (5)
  1. ROPINIROLE. [Concomitant]
     Active Substance: ROPINIROLE
     Indication: RESTLESS LEGS SYNDROME
     Dosage: AS NEEDED
     Dates: start: 2020
  2. QUETIAPINE. [Concomitant]
     Active Substance: QUETIAPINE
     Indication: SLEEP DISORDER
     Dosage: AT BEDTIME
     Dates: start: 2020
  3. EXTRA STRENGTH TYLENOL BACK PAIN [Concomitant]
     Active Substance: ACETAMINOPHEN\METHOCARBAMOL
     Indication: PAIN
     Dosage: AS NEEDED
     Dates: start: 2011
  4. VENTOLIN [Concomitant]
     Active Substance: ALBUTEROL SULFATE
     Indication: CHRONIC OBSTRUCTIVE PULMONARY DISEASE
     Dosage: 1?2 PUFFS AS NEEDED DAILY
     Dates: start: 2018
  5. COMBIVENT [Suspect]
     Active Substance: ALBUTEROL SULFATE\IPRATROPIUM BROMIDE
     Indication: CHRONIC OBSTRUCTIVE PULMONARY DISEASE
     Dosage: 1 INHALATION, TWICE A DAY
     Route: 055
     Dates: start: 2018

REACTIONS (2)
  - Peripheral vascular disorder [Recovered/Resolved]
  - Cardiovascular disorder [Recovered/Resolved]

NARRATIVE: CASE EVENT DATE: 202009
